FAERS Safety Report 21725263 (Version 1)
Quarter: 2022Q4

REPORT INFORMATION
  Report Type: Report from Study
  Country: US (occurrence: US)
  Receive Date: 20221214
  Receipt Date: 20221214
  Transmission Date: 20230112
  Serious: Yes (Death, Life-Threatening, Other)
  Sender: FDA-Public Use
  Company Number: US-SUN PHARMACEUTICAL INDUSTRIES LTD-2022R1-368550

PATIENT
  Age: 16 Year
  Sex: Male

DRUGS (2)
  1. CAFFEINE [Suspect]
     Active Substance: CAFFEINE
     Indication: Product used for unknown indication
     Dosage: UNK
     Route: 065
  2. METHAMPHETAMINE [Suspect]
     Active Substance: METHAMPHETAMINE
     Indication: Product used for unknown indication
     Dosage: UNK
     Route: 065

REACTIONS (12)
  - Toxicity to various agents [Fatal]
  - Acute kidney injury [Unknown]
  - Hypoglycaemia [Unknown]
  - Coagulopathy [Unknown]
  - Hyperreflexia [Unknown]
  - Hepatotoxicity [Unknown]
  - Depressed level of consciousness [Unknown]
  - Leukocytosis [Unknown]
  - Myocardial injury [Unknown]
  - Seizure [Unknown]
  - Tachycardia [Unknown]
  - Thrombocytopenia [Unknown]
